FAERS Safety Report 9998143 (Version 2)
Quarter: 2014Q2

REPORT INFORMATION
  Report Type: Spontaneous
  Country: US (occurrence: US)
  Receive Date: 20140311
  Receipt Date: 20140530
  Transmission Date: 20141212
  Serious: Yes (Death, Other)
  Sender: FDA-Public Use
  Company Number: US-GILEAD-2014-0096354

PATIENT
  Sex: Male

DRUGS (9)
  1. LETAIRIS [Suspect]
     Indication: PULMONARY ARTERIAL HYPERTENSION
     Dosage: 10 MG, QD
     Route: 065
     Dates: start: 200804, end: 201402
  2. WARFARIN [Suspect]
     Indication: PULMONARY HYPERTENSION
     Route: 048
  3. SILDENAFIL [Concomitant]
     Dosage: UNK
     Dates: start: 2009
  4. TRIAMTERENE/HCTZ [Concomitant]
  5. KCL [Concomitant]
  6. FUROSEMIDE [Concomitant]
  7. GABAPENTIN [Concomitant]
  8. ALLOPURINOL [Concomitant]
  9. HYDROCODONE/APAP [Concomitant]

REACTIONS (4)
  - Gastrointestinal haemorrhage [Fatal]
  - Melaena [Unknown]
  - Abdominal discomfort [Unknown]
  - Fatigue [Unknown]
